FAERS Safety Report 5494837-8 (Version None)
Quarter: 2007Q4

REPORT INFORMATION
  Report Type: 
  Country: None (occurrence: None)
  Receive Date: 20071024
  Receipt Date: 20071015
  Transmission Date: 20080405
  Serious: Yes (Other)
  Sender: FDA-Public Use
  Company Number: US-ELI_LILLY_AND_COMPANY-US200710003644

PATIENT
  Sex: Female

DRUGS (1)
  1. EVISTA [Suspect]
     Dosage: 60 MG, UNK

REACTIONS (2)
  - BLOOD CHOLESTEROL INCREASED [None]
  - MYOCARDIAL INFARCTION [None]
